FAERS Safety Report 4978847-2 (Version None)
Quarter: 2006Q2

REPORT INFORMATION
  Report Type: 
  Country: None (occurrence: None)
  Receive Date: 20060417
  Receipt Date: 20060403
  Transmission Date: 20061013
  Serious: Yes (Other)
  Sender: FDA-Public Use
  Company Number: B0419974A

PATIENT
  Age: 18 Year
  Sex: Male

DRUGS (4)
  1. THORAZINE [Suspect]
     Indication: MANIA
  2. ESKALITH [Suspect]
     Indication: MANIA
  3. RISPERIDONE [Suspect]
     Indication: MANIA
  4. BENZHEXOL [Concomitant]

REACTIONS (8)
  - DYSPHAGIA [None]
  - EXTRAPYRAMIDAL DISORDER [None]
  - HEPATO-LENTICULAR DEGENERATION [None]
  - INSOMNIA [None]
  - IRRITABILITY [None]
  - PANCYTOPENIA [None]
  - RESTLESSNESS [None]
  - SPLENOMEGALY [None]
